FAERS Safety Report 19207665 (Version 1)
Quarter: 2021Q2

REPORT INFORMATION
  Report Type: Spontaneous
  Country: FR (occurrence: FR)
  Receive Date: 20210503
  Receipt Date: 20210503
  Transmission Date: 20210717
  Serious: Yes (Hospitalization)
  Sender: FDA-Public Use
  Company Number: FR-ACCORD-223917

PATIENT
  Age: 85 Year
  Sex: Female
  Weight: 74.4 kg

DRUGS (7)
  1. FUROSEMIDE. [Suspect]
     Active Substance: FUROSEMIDE
     Indication: CARDIAC FAILURE
     Route: 048
     Dates: end: 20210127
  2. AMIODARONE [Concomitant]
     Active Substance: AMIODARONE
  3. ROSUVASTATIN. [Concomitant]
     Active Substance: ROSUVASTATIN
  4. COUMADINE [Suspect]
     Active Substance: WARFARIN SODIUM
     Indication: ARRHYTHMIA SUPRAVENTRICULAR
     Dosage: 2MG 1 DAY/2 ; 2.5MG 1 DAY/2
     Route: 048
     Dates: start: 2010, end: 20210127
  5. DIFFU K [Concomitant]
     Active Substance: POTASSIUM CHLORIDE
  6. LEVOTHYROX [Concomitant]
     Active Substance: LEVOTHYROXINE
  7. BISOPROLOL [Concomitant]
     Active Substance: BISOPROLOL

REACTIONS (2)
  - Acute kidney injury [Recovered/Resolved]
  - Haemorrhagic diathesis [Recovered/Resolved]

NARRATIVE: CASE EVENT DATE: 20210127
